FAERS Safety Report 15963307 (Version 4)
Quarter: 2019Q2

REPORT INFORMATION
  Report Type: Spontaneous
  Country: JP (occurrence: JP)
  Receive Date: 20190214
  Receipt Date: 20190411
  Transmission Date: 20190711
  Serious: Yes (Death, Hospitalization, Other)
  Sender: FDA-Public Use
  Company Number: JP-ASTRAZENECA-2019SE06279

PATIENT
  Age: 28758 Day
  Sex: Male
  Weight: 49 kg

DRUGS (21)
  1. URIEF [Suspect]
     Active Substance: SILODOSIN
     Route: 048
  2. AMLODIPINE [Concomitant]
     Active Substance: AMLODIPINE BESYLATE
     Dosage: DOSE UNKNOWN
     Route: 065
  3. GASMOTIN [Concomitant]
     Active Substance: MOSAPRIDE CITRATE
     Dosage: DOSE UNKNOWN
     Route: 065
  4. AMLODIPINE [Suspect]
     Active Substance: AMLODIPINE BESYLATE
     Route: 048
  5. MAGMITT [Suspect]
     Active Substance: MAGNESIUM OXIDE
     Route: 065
  6. AMBROXOL HYDROCHLORIDE [Concomitant]
     Active Substance: AMBROXOL HYDROCHLORIDE
     Dosage: DOSE UNKNOWN
     Route: 065
  7. CARBOCISTEINE LYSINE [Concomitant]
     Active Substance: CARBOCYSTEINE LYSINE
     Dosage: DOSE UNKNOWN
     Route: 065
  8. MUCODYNE [Suspect]
     Active Substance: CARBOCYSTEINE
     Route: 048
  9. SENNOSIDE [Suspect]
     Active Substance: SENNOSIDES
     Route: 065
  10. URIEF [Concomitant]
     Active Substance: SILODOSIN
     Dosage: DOSE UNKNOWN
     Route: 065
  11. LOXONIN [Concomitant]
     Active Substance: LOXOPROFEN SODIUM
     Dosage: DOSE UNKNOWN
     Route: 065
  12. IRESSA [Suspect]
     Active Substance: GEFITINIB
     Indication: NON-SMALL CELL LUNG CANCER
     Route: 048
     Dates: start: 20170314, end: 20170720
  13. FEBURIC [Suspect]
     Active Substance: FEBUXOSTAT
     Route: 048
  14. TRAMCET [Suspect]
     Active Substance: ACETAMINOPHEN\TRAMADOL
     Route: 048
  15. FEBURIC [Concomitant]
     Active Substance: FEBUXOSTAT
     Dosage: DOSE UNKNOWN
     Route: 065
  16. GASMOTIN [Suspect]
     Active Substance: MOSAPRIDE CITRATE
     Route: 048
  17. LYRICA [Suspect]
     Active Substance: PREGABALIN
     Route: 048
  18. MUCOSOLVAN [Suspect]
     Active Substance: AMBROXOL HYDROCHLORIDE
     Route: 048
  19. LOXONIN [Suspect]
     Active Substance: LOXOPROFEN SODIUM
     Route: 065
  20. TAGRISSO [Suspect]
     Active Substance: OSIMERTINIB
     Indication: NON-SMALL CELL LUNG CANCER
     Route: 048
     Dates: start: 20180823, end: 20190107
  21. LYRICA [Concomitant]
     Active Substance: PREGABALIN
     Dosage: DOSE UNKNOWN
     Route: 065

REACTIONS (3)
  - Lung disorder [Fatal]
  - Stomatitis [Recovering/Resolving]
  - Skin disorder [Recovering/Resolving]

NARRATIVE: CASE EVENT DATE: 20170525
